FAERS Safety Report 24335458 (Version 5)
Quarter: 2024Q4

REPORT INFORMATION
  Report Type: Spontaneous
  Country: CA (occurrence: CA)
  Receive Date: 20240919
  Receipt Date: 20241024
  Transmission Date: 20250115
  Serious: Yes (Other)
  Sender: CELLTRION
  Company Number: CA-PFIZER INC-202400253925

PATIENT

DRUGS (7)
  1. INFLECTRA [Suspect]
     Active Substance: INFLIXIMAB-DYYB
     Indication: Colitis ulcerative
     Dosage: 5 MG/KG, WEEK 0, 2, 6 AND Q8
     Route: 042
     Dates: start: 20240827
  2. INFLECTRA [Suspect]
     Active Substance: INFLIXIMAB-DYYB
     Dosage: 5 MG/KG, W0, 2, 6 AND Q8 (435 MG, 2 WEEKS)
     Route: 042
     Dates: start: 20240910
  3. INFLECTRA [Suspect]
     Active Substance: INFLIXIMAB-DYYB
     Dosage: 860 MG, AFTER 2 WEEKS (EMERGENCY DOSE) (10 MG/KG, RESCUE DOSE)
     Route: 042
     Dates: start: 20240925, end: 20240925
  4. INFLECTRA [Suspect]
     Active Substance: INFLIXIMAB-DYYB
     Dosage: 10 MG/KG, WEEK 6
     Route: 042
     Dates: start: 20241009, end: 20241009
  5. PREDNISONE [Concomitant]
     Active Substance: PREDNISONE
     Dosage: UNK
     Dates: start: 20241015
  6. RINVOQ [Concomitant]
     Active Substance: UPADACITINIB
     Dosage: 30 MG, 1X/DAY (OD)
     Dates: start: 202309
  7. UCERIS [Concomitant]
     Active Substance: BUDESONIDE
     Dosage: 1 DF

REACTIONS (3)
  - Condition aggravated [Recovering/Resolving]
  - Therapy non-responder [Unknown]
  - Off label use [Unknown]

NARRATIVE: CASE EVENT DATE: 20240101
